FAERS Safety Report 9332957 (Version 1)
Quarter: 2013Q2

REPORT INFORMATION
  Report Type: Spontaneous
  Country: GB (occurrence: GB)
  Receive Date: 20130606
  Receipt Date: 20130606
  Transmission Date: 20140414
  Serious: Yes (Other)
  Sender: FDA-Public Use
  Company Number: GB-ASTELLAS-2013EU004720

PATIENT
  Age: 55 Year
  Sex: Female

DRUGS (1)
  1. VESICARE [Suspect]
     Dosage: 5 MG, UNKNOWN/D
     Route: 065

REACTIONS (4)
  - Oropharyngeal pain [Recovering/Resolving]
  - Lip swelling [Recovering/Resolving]
  - Swollen tongue [Recovering/Resolving]
  - Hypoaesthesia [Recovering/Resolving]
